FAERS Safety Report 4544102-8 (Version None)
Quarter: 2005Q1

REPORT INFORMATION
  Report Type: 
  Country: None (occurrence: None)
  Receive Date: 20050104
  Receipt Date: 20041124
  Transmission Date: 20050727
  Serious: Yes (Hospitalization, Other)
  Sender: FDA-Public Use
  Company Number: JP-MERCK-0411USA04188

PATIENT
  Age: 56 Year
  Sex: Male

DRUGS (2)
  1. PEPCID [Suspect]
     Indication: ABDOMINAL PAIN UPPER
     Route: 048
  2. ACTOS [Suspect]
     Route: 048

REACTIONS (1)
  - HEPATITIS B [None]
